FAERS Safety Report 5303739-9 (Version None)
Quarter: 2007Q2

REPORT INFORMATION
  Report Type: 
  Country: None (occurrence: None)
  Receive Date: 20070420
  Receipt Date: 20070411
  Transmission Date: 20071010
  Serious: Yes (Other)
  Sender: FDA-Public Use
  Company Number: US-MERCK-0704USA02321

PATIENT
  Age: 31 Year
  Sex: Female

DRUGS (2)
  1. MAXALT [Suspect]
     Route: 065
  2. DROPERIDOL [Concomitant]
     Route: 065

REACTIONS (4)
  - DYSTONIA [None]
  - LOSS OF CONSCIOUSNESS [None]
  - TACHYCARDIA [None]
  - TREMOR [None]
